FAERS Safety Report 4817677-9 (Version None)
Quarter: 2005Q3

REPORT INFORMATION
  Report Type: 
  Country: None (occurrence: None)
  Receive Date: 20050929
  Receipt Date: 20050801
  Transmission Date: 20060218
  Serious: No
  Sender: FDA-Public Use
  Company Number: 05P-163-0307162-00

PATIENT
  Age: 56 Year
  Sex: Female
  Weight: 59.8748 kg

DRUGS (12)
  1. HUMIRA [Suspect]
     Indication: RHEUMATOID ARTHRITIS
     Dosage: 40 MG, 1 IN 2 WK, SUBCUTANEOUS
     Route: 058
     Dates: start: 20040701
  2. METHOTREXATE [Concomitant]
  3. FOLIC ACID [Concomitant]
  4. FOSINOPRIL SODIUM [Concomitant]
  5. ETODOLAC [Concomitant]
  6. HYDROXYCHLOROQUINE PHOSPHATE [Concomitant]
  7. TIZANIDINE HCL [Concomitant]
  8. PREDNISONE [Concomitant]
  9. VITAMIDYNE A AND D [Concomitant]
  10. TOCOPHEROL CONCENTRATE CAP [Concomitant]
  11. GARLIC [Concomitant]
  12. BEE POLLEN [Concomitant]

REACTIONS (5)
  - INJECTION SITE DISCOLOURATION [None]
  - INJECTION SITE ERYTHEMA [None]
  - INJECTION SITE INDURATION [None]
  - INJECTION SITE IRRITATION [None]
  - INJECTION SITE SWELLING [None]
